FAERS Safety Report 13355332 (Version 1)
Quarter: 2017Q1

REPORT INFORMATION
  Report Type: Spontaneous
  Country: US (occurrence: US)
  Receive Date: 20170321
  Receipt Date: 20170321
  Transmission Date: 20170429
  Serious: No
  Sender: FDA-Public Use
  Company Number: None

PATIENT
  Age: 57 Year
  Sex: Female
  Weight: 65.83 kg

DRUGS (6)
  1. CALCIUM [Concomitant]
     Active Substance: CALCIUM
  2. VITAMIN D [Concomitant]
     Active Substance: CHOLECALCIFEROL
  3. MAGNESIUM [Concomitant]
     Active Substance: MAGNESIUM
  4. KLONOPIN [Concomitant]
     Active Substance: CLONAZEPAM
  5. PROLIA [Suspect]
     Active Substance: DENOSUMAB
     Indication: OSTEOPOROSIS
     Dosage: 1 INJECTION EVERY 6 MONTHS 2X YEAR INJECTION IN STOMACH
     Dates: start: 20160509, end: 20160509
  6. AMITRYPTYLINE [Concomitant]
     Active Substance: AMITRIPTYLINE

REACTIONS (12)
  - Arthralgia [None]
  - Pain in extremity [None]
  - Toothache [None]
  - Neck pain [None]
  - Back pain [None]
  - Gastrointestinal disorder [None]
  - Abdominal distension [None]
  - Blood urine present [None]
  - Fatigue [None]
  - Pruritus [None]
  - Nephrolithiasis [None]
  - Alopecia [None]

NARRATIVE: CASE EVENT DATE: 20160509
